FAERS Safety Report 12582032 (Version 1)
Quarter: 2016Q3

REPORT INFORMATION
  Report Type: Report from Study
  Country: US (occurrence: US)
  Receive Date: 20160722
  Receipt Date: 20160722
  Transmission Date: 20161109
  Serious: Yes (Death)
  Sender: FDA-Public Use
  Company Number: US-ASTRAZENECA-2016SE54602

PATIENT
  Sex: Female
  Weight: 58.1 kg

DRUGS (15)
  1. TAGRISSO [Suspect]
     Active Substance: OSIMERTINIB
     Indication: LUNG NEOPLASM MALIGNANT
     Route: 048
     Dates: start: 20160402
  2. BREO ELLIPTA [Concomitant]
     Active Substance: FLUTICASONE FUROATE\VILANTEROL TRIFENATATE
  3. COENZYME Q10 [Concomitant]
     Active Substance: UBIDECARENONE
  4. FOLIC ACID. [Concomitant]
     Active Substance: FOLIC ACID
  5. ELIQUIS [Concomitant]
     Active Substance: APIXABAN
  6. ONDANSETRON [Concomitant]
     Active Substance: ONDANSETRON
  7. IMODIUM [Concomitant]
     Active Substance: LOPERAMIDE HYDROCHLORIDE
  8. MULTIVITAMINS [Concomitant]
     Active Substance: VITAMINS
  9. DIGOXIN. [Concomitant]
     Active Substance: DIGOXIN
  10. TOPROL XL [Suspect]
     Active Substance: METOPROLOL SUCCINATE
     Route: 048
  11. HYDROCHLOROTHIAZIDE. [Concomitant]
     Active Substance: HYDROCHLOROTHIAZIDE
  12. STROVITE [Concomitant]
     Dosage: UNKNOWN
     Route: 048
  13. FENTANYL. [Concomitant]
     Active Substance: FENTANYL
  14. ATORVASTATIN CALCIUM. [Concomitant]
     Active Substance: ATORVASTATIN CALCIUM
     Route: 048
  15. GLUCOSAMINE-CHONDROITIN [Concomitant]
     Active Substance: CHONDROITIN SULFATE (BOVINE)\GLUCOSAMINE SULFATE

REACTIONS (4)
  - Death [Fatal]
  - Musculoskeletal chest pain [Unknown]
  - Vomiting [Unknown]
  - Nausea [Unknown]
